FAERS Safety Report 14955087 (Version 4)
Quarter: 2018Q4

REPORT INFORMATION
  Report Type: Report from Study
  Country: JP (occurrence: JP)
  Receive Date: 20180531
  Receipt Date: 20181008
  Transmission Date: 20190204
  Serious: Yes (Death, Hospitalization, Disabling)
  Sender: FDA-Public Use
  Company Number: JP-AMGEN-JPNSP2018072984

PATIENT
  Age: 74 Year
  Sex: Male

DRUGS (4)
  1. ETELCALCETIDE [Suspect]
     Active Substance: ETELCALCETIDE
     Indication: HYPERPARATHYROIDISM SECONDARY
     Dosage: 5 MG, QWK
     Route: 042
     Dates: start: 20170624, end: 20170729
  2. CALTAN [Concomitant]
     Active Substance: CALCIUM CARBONATE
     Dosage: UNK, QD
  3. ROCALTROL [Concomitant]
     Active Substance: CALCITRIOL
     Dosage: UNK
  4. P-TOL [Concomitant]
     Active Substance: FERRIC OXYHYDROXIDE
     Dosage: UNK

REACTIONS (3)
  - Peripheral ischaemia [Not Recovered/Not Resolved]
  - Necrotising fasciitis [Not Recovered/Not Resolved]
  - Death [Fatal]

NARRATIVE: CASE EVENT DATE: 2017
